FAERS Safety Report 13382284 (Version 1)
Quarter: 2017Q1

REPORT INFORMATION
  Report Type: Report from Study
  Country: CO (occurrence: CO)
  Receive Date: 20170329
  Receipt Date: 20170329
  Transmission Date: 20170429
  Serious: Yes (Death, Hospitalization)
  Sender: FDA-Public Use
  Company Number: PHHY2017CO015645

PATIENT
  Age: 36 Year
  Sex: Female
  Weight: 50 kg

DRUGS (1)
  1. AFINITOR [Suspect]
     Active Substance: EVEROLIMUS
     Indication: BREAST CANCER
     Dosage: 10 MG, QD
     Route: 048
     Dates: start: 20160717

REACTIONS (6)
  - Fatigue [Unknown]
  - Urinary retention [Unknown]
  - Decreased appetite [Unknown]
  - Oesophagitis [Unknown]
  - Death [Fatal]
  - Gastritis [Unknown]

NARRATIVE: CASE EVENT DATE: 20161230
